FAERS Safety Report 15917108 (Version 2)
Quarter: 2019Q1

REPORT INFORMATION
  Report Type: Spontaneous
  Country: FR (occurrence: FR)
  Receive Date: 20190205
  Receipt Date: 20190326
  Transmission Date: 20190417
  Serious: Yes (Life-Threatening)
  Sender: FDA-Public Use
  Company Number: FR-ACCORD-105515

PATIENT
  Age: 80 Year
  Sex: Female
  Weight: 73 kg

DRUGS (4)
  1. SUFENTA [Concomitant]
     Active Substance: SUFENTANIL CITRATE
     Route: 042
     Dates: start: 20180507, end: 20180507
  2. CEFAZOLINE PANPHARMA [Suspect]
     Active Substance: CEFAZOLIN SODIUM
     Indication: ANTIBIOTIC PROPHYLAXIS
     Route: 042
  3. DIPRIVAN [Concomitant]
     Active Substance: PROPOFOL
     Route: 042
     Dates: start: 20180507, end: 20180507
  4. CISATRACURIUM/CISATRACURIUM BESILATE [Suspect]
     Active Substance: CISATRACURIUM BESYLATE
     Indication: HIP ARTHROPLASTY
     Route: 042
     Dates: start: 20180507, end: 20180507

REACTIONS (1)
  - Anaphylactic shock [Recovered/Resolved]

NARRATIVE: CASE EVENT DATE: 20180507
